FAERS Safety Report 15264729 (Version 1)
Quarter: 2018Q3

REPORT INFORMATION
  Report Type: Spontaneous
  Country: US (occurrence: US)
  Receive Date: 20180723
  Receipt Date: 20180723
  Transmission Date: 20181010
  Serious: Yes (Disabling)
  Sender: FDA-Public Use
  Company Number: None

PATIENT
  Age: 48 Year
  Sex: Female
  Weight: 72 kg

DRUGS (7)
  1. FOCUS FACTOR [Concomitant]
  2. CHOLESTOFF PLUS [Concomitant]
  3. ULTIMATE FLORA [Concomitant]
     Active Substance: PROBIOTICS NOS
  4. GNC WOMENS ULTRA MEGA [Concomitant]
  5. TAYTULLA [Suspect]
     Active Substance: ETHINYL ESTRADIOL\NORETHINDRONE ACETATE
     Indication: CONTRACEPTION
     Dosage: ?          QUANTITY:1 CAPSULE(S);?
     Route: 048
     Dates: start: 20180609, end: 20180717
  6. OSTEO BIFLEX [Concomitant]
     Active Substance: CHONDROITIN SULFATE A\GLUCOSAMINE
  7. OCUVITE [Concomitant]
     Active Substance: VITAMINS

REACTIONS (12)
  - Mood altered [None]
  - Exercise tolerance decreased [None]
  - Fatigue [None]
  - Anxiety [None]
  - Fluid retention [None]
  - Peripheral swelling [None]
  - Joint swelling [None]
  - Abdominal distension [None]
  - Muscular weakness [None]
  - Depression [None]
  - Acne [None]
  - Arthralgia [None]

NARRATIVE: CASE EVENT DATE: 20180717
